FAERS Safety Report 6509501-3 (Version None)
Quarter: 2009Q4

REPORT INFORMATION
  Report Type: 
  Country: None (occurrence: None)
  Receive Date: 20091218
  Receipt Date: 20091130
  Transmission Date: 20100525
  Serious: Yes (Hospitalization)
  Sender: FDA-Public Use
  Company Number: B0613512A

PATIENT
  Age: 38 Year
  Sex: Female

DRUGS (4)
  1. PROPRANOLOL HYDROCHLORIDE (FORMULATION UNKNOWN) (GENERIC) (PROPRANOLOL [Suspect]
  2. CARBAMAZEPINE [Suspect]
  3. MEPROBAMATE [Suspect]
  4. HYDROXYZINE [Suspect]

REACTIONS (4)
  - CARDIAC FAILURE [None]
  - DRUG TOXICITY [None]
  - INTESTINAL INFARCTION [None]
  - INTESTINAL ISCHAEMIA [None]
